FAERS Safety Report 25984319 (Version 2)
Quarter: 2025Q4

REPORT INFORMATION
  Report Type: Spontaneous
  Country: JP (occurrence: JP)
  Receive Date: 20251031
  Receipt Date: 20251121
  Transmission Date: 20260118
  Serious: Yes (Other)
  Sender: TAKEDA
  Company Number: JP-TAKEDA-2025TUS096409

PATIENT
  Age: 29 Year
  Sex: Male
  Weight: 55 kg

DRUGS (4)
  1. LIALDA [Suspect]
     Active Substance: MESALAMINE
     Indication: Colitis ulcerative
     Dosage: 4800 MILLIGRAM, QD
     Dates: start: 201803
  2. OMVOH [Suspect]
     Active Substance: MIRIKIZUMAB-MRKZ
     Indication: Colitis ulcerative
     Dosage: 200 MILLIGRAM, QD
     Dates: start: 20250902, end: 2025
  3. OMVOH [Suspect]
     Active Substance: MIRIKIZUMAB-MRKZ
     Dosage: 200 MILLIGRAM, QD
     Dates: start: 20251003, end: 202510
  4. OMVOH [Suspect]
     Active Substance: MIRIKIZUMAB-MRKZ
     Dosage: UNK

REACTIONS (2)
  - Syncope [Recovered/Resolved]
  - Injection site pain [Recovered/Resolved]

NARRATIVE: CASE EVENT DATE: 20251003
